FAERS Safety Report 11596342 (Version 3)
Quarter: 2015Q4

REPORT INFORMATION
  Report Type: Spontaneous
  Country: US (occurrence: US)
  Receive Date: 20151006
  Receipt Date: 20151027
  Transmission Date: 20160304
  Serious: Yes (Death, Hospitalization, Other)
  Sender: FDA-Public Use
  Company Number: US-JNJFOC-20151000810

PATIENT
  Age: 25 Year
  Sex: Female

DRUGS (1)
  1. LOPERAMIDE HYDROCHLORIDE. [Suspect]
     Active Substance: LOPERAMIDE HYDROCHLORIDE
     Indication: PRODUCT USED FOR UNKNOWN INDICATION
     Route: 065

REACTIONS (11)
  - Drug abuse [Fatal]
  - Shock [Recovered/Resolved]
  - Abdominal discomfort [Unknown]
  - Cardio-respiratory arrest [Fatal]
  - Intentional product misuse [Unknown]
  - Abdominal pain [Unknown]
  - Vomiting [Unknown]
  - Ventricular tachycardia [Recovered/Resolved]
  - Nausea [Unknown]
  - Long QT syndrome [Fatal]
  - Electrocardiogram QRS complex prolonged [Recovered/Resolved]
